FAERS Safety Report 8766448 (Version 2)
Quarter: 2015Q3

REPORT INFORMATION
  Report Type: Report from Study
  Country: US (occurrence: US)
  Receive Date: 20120904
  Receipt Date: 20150701
  Transmission Date: 20151125
  Serious: Yes (Death)
  Sender: FDA-Public Use
  Company Number: US-ROCHE-CID000000002086264

PATIENT
  Sex: Male

DRUGS (20)
  1. ATENOLOL. [Concomitant]
     Active Substance: ATENOLOL
     Route: 065
  2. ALIMTA [Concomitant]
     Active Substance: PEMETREXED DISODIUM
  3. CAMPTOSAR [Concomitant]
     Active Substance: IRINOTECAN HYDROCHLORIDE
     Route: 065
  4. TAXOTERE [Concomitant]
     Active Substance: DOCETAXEL
  5. PROCARDIA (UNITED STATES) [Concomitant]
     Route: 065
  6. ARANESP [Concomitant]
     Active Substance: DARBEPOETIN ALFA
  7. TARCEVA [Suspect]
     Active Substance: ERLOTINIB HYDROCHLORIDE
     Indication: MALIGNANT RESPIRATORY TRACT NEOPLASM
     Route: 048
  8. ETOPOSIDE. [Concomitant]
     Active Substance: ETOPOSIDE
  9. AVASTIN [Suspect]
     Active Substance: BEVACIZUMAB
     Indication: MALIGNANT RESPIRATORY TRACT NEOPLASM
     Route: 042
     Dates: start: 20060310
  10. PROCARDIA (UNITED STATES) [Concomitant]
     Route: 065
  11. DILAUDID [Concomitant]
     Active Substance: HYDROMORPHONE HYDROCHLORIDE
     Route: 048
  12. FILGRASTIM [Concomitant]
     Active Substance: FILGRASTIM
     Indication: WHITE BLOOD CELL COUNT DECREASED
     Route: 065
  13. AUGMENTIN [Concomitant]
     Active Substance: AMOXICILLIN\CLAVULANATE POTASSIUM
     Indication: PHARYNGITIS
  14. PEGFILGRASTIM [Concomitant]
     Active Substance: PEGFILGRASTIM
     Indication: ANAEMIA
     Route: 065
  15. DECADRON [Concomitant]
     Active Substance: DEXAMETHASONE
     Indication: BONE PAIN
     Route: 065
  16. ATENOLOL. [Concomitant]
     Active Substance: ATENOLOL
     Route: 065
  17. ALDACTONE (UNITED STATES) [Concomitant]
     Indication: FLUID RETENTION
     Route: 065
  18. VITAMIN B12 [Concomitant]
     Active Substance: CYANOCOBALAMIN
     Route: 042
  19. LASIX [Concomitant]
     Active Substance: FUROSEMIDE
     Indication: FLUID RETENTION
  20. CARBOPLATIN. [Concomitant]
     Active Substance: CARBOPLATIN

REACTIONS (21)
  - Rheumatoid nodule [Unknown]
  - Therapeutic product ineffective [Unknown]
  - Dyspnoea [Recovering/Resolving]
  - Proteinuria [Recovering/Resolving]
  - Anaemia [Unknown]
  - Hypertension [Unknown]
  - Back pain [Unknown]
  - Ill-defined disorder [Unknown]
  - Musculoskeletal discomfort [Unknown]
  - Bone pain [Unknown]
  - Nephrotic syndrome [Unknown]
  - Exostosis [Unknown]
  - Death [Fatal]
  - Paraesthesia [Unknown]
  - Oropharyngeal pain [Unknown]
  - Peripheral swelling [Unknown]
  - Pain [Unknown]
  - Asthenia [Unknown]
  - Fluid retention [Unknown]
  - Thrombocytopenia [Unknown]
  - Metastases to adrenals [Unknown]
